FAERS Safety Report 9472152 (Version 1)
Quarter: 2013Q3

REPORT INFORMATION
  Report Type: Report from Study
  Country: BR (occurrence: BR)
  Receive Date: 20130823
  Receipt Date: 20130823
  Transmission Date: 20140515
  Serious: Yes (Hospitalization)
  Sender: FDA-Public Use
  Company Number: BR-ROCHE-1265528

PATIENT
  Sex: Female
  Weight: 66 kg

DRUGS (2)
  1. INTERFERON ALFA-2A [Suspect]
     Indication: PRODUCT USED FOR UNKNOWN INDICATION
     Route: 065
     Dates: start: 2008
  2. RIBAVIRIN [Suspect]
     Indication: PRODUCT USED FOR UNKNOWN INDICATION
     Route: 065
     Dates: start: 2008

REACTIONS (2)
  - Anaemia [Unknown]
  - Breast mass [Not Recovered/Not Resolved]
